FAERS Safety Report 6745971-3 (Version None)
Quarter: 2010Q2

REPORT INFORMATION
  Report Type: 
  Country: None (occurrence: None)
  Receive Date: 20100526
  Receipt Date: 20100520
  Transmission Date: 20101027
  Serious: Yes (Death)
  Sender: FDA-Public Use
  Company Number: 2010SP010314

PATIENT
  Sex: Male

DRUGS (6)
  1. VIRAFERONPEG [Suspect]
     Indication: HEPATITIS C
     Dosage: 150 MCG; QW; SC
     Route: 058
     Dates: start: 20090629, end: 20090824
  2. REBETOL [Suspect]
     Dosage: 600 MG; TID
     Dates: start: 20090629
  3. FLUOXETINE [Concomitant]
  4. LORAZEPAM [Concomitant]
  5. RISPERIDONE [Concomitant]
  6. CHLORPROMAZINE [Concomitant]

REACTIONS (2)
  - ACUTE RESPIRATORY DISTRESS SYNDROME [None]
  - INTERSTITIAL LUNG DISEASE [None]
